FAERS Safety Report 11467937 (Version 1)
Quarter: 2015Q3

REPORT INFORMATION
  Report Type: Spontaneous
  Country: US (occurrence: US)
  Receive Date: 20150908
  Receipt Date: 20150908
  Transmission Date: 20151125
  Serious: No
  Sender: FDA-Public Use
  Company Number: US-BAYER-2015-416845

PATIENT
  Age: 45 Year
  Sex: Female
  Weight: 79.37 kg

DRUGS (2)
  1. CLARITIN REDITABS [Suspect]
     Active Substance: LORATADINE
     Indication: SEASONAL ALLERGY
     Dosage: UNK UNK, ONCE
     Route: 048
     Dates: start: 20150824
  2. NIACIN. [Concomitant]
     Active Substance: NIACIN

REACTIONS (1)
  - Product use issue [None]

NARRATIVE: CASE EVENT DATE: 20150824
